FAERS Safety Report 14559785 (Version 1)
Quarter: 2018Q1

REPORT INFORMATION
  Report Type: Spontaneous
  Country: US (occurrence: US)
  Receive Date: 20180220
  Receipt Date: 20180220
  Transmission Date: 20180509
  Serious: Yes (Other)
  Sender: FDA-Public Use
  Company Number: None

PATIENT
  Age: 70 Year
  Sex: Female
  Weight: 58.05 kg

DRUGS (3)
  1. CYANOCOBALAMIN. [Suspect]
     Active Substance: CYANOCOBALAMIN
     Indication: PERNICIOUS ANAEMIA
     Dosage: QUANTITY:1 INJECTION(S);OTHER FREQUENCY:2 X MONTH;?
     Route: 030
     Dates: start: 20010423, end: 20180208
  2. VITAMIN B12 [Concomitant]
     Active Substance: CYANOCOBALAMIN
  3. NEW CHAPTER 40+EVARY WOMAEN^S ONE DAY MULTIVITAMIN [Concomitant]

REACTIONS (2)
  - Alopecia [None]
  - Product substitution issue [None]
